FAERS Safety Report 23736335 (Version 1)
Quarter: 2024Q2

REPORT INFORMATION
  Report Type: Spontaneous
  Country: US (occurrence: US)
  Receive Date: 20240412
  Receipt Date: 20240412
  Transmission Date: 20240715
  Serious: No
  Sender: FDA-Public Use
  Company Number: US-SANOFI-02004466

PATIENT
  Sex: Male

DRUGS (1)
  1. RENVELA [Suspect]
     Active Substance: SEVELAMER CARBONATE
     Indication: Chronic kidney disease
     Dosage: 800 MG, TID
     Route: 048
     Dates: start: 2023

REACTIONS (4)
  - Dysphagia [Unknown]
  - Dialysis [Unknown]
  - Pruritus [Unknown]
  - Wrong technique in product usage process [Unknown]
